FAERS Safety Report 5957527-0 (Version None)
Quarter: 2008Q4

REPORT INFORMATION
  Report Type: 
  Country: None (occurrence: None)
  Receive Date: 20081112
  Receipt Date: 20081031
  Transmission Date: 20090506
  Serious: Yes (Hospitalization)
  Sender: FDA-Public Use
  Company Number: WAES 0608DEU00103

PATIENT
  Age: 51 Year
  Sex: Male

DRUGS (11)
  1. CAP VORINOSTAT [Suspect]
     Indication: MYCOSIS FUNGOIDES
     Dosage: 200 MG, PO
     Route: 048
     Dates: start: 20060412, end: 20060530
  2. CAP VORINOSTAT [Suspect]
     Indication: MYCOSIS FUNGOIDES
     Dosage: 200 MG, PO
     Route: 048
     Dates: start: 20060609, end: 20060807
  3. CAP BEXAROTENE [Suspect]
     Indication: MYCOSIS FUNGOIDES
     Dosage: 525 MG, PO, 300 MG, PO, 375 MG,
     Route: 048
     Dates: start: 20060419, end: 20060530
  4. CAP BEXAROTENE [Suspect]
     Indication: MYCOSIS FUNGOIDES
     Dosage: 525 MG, PO, 300 MG, PO, 375 MG,
     Route: 048
     Dates: start: 20060615, end: 20060719
  5. CAP BEXAROTENE [Suspect]
     Indication: MYCOSIS FUNGOIDES
     Dosage: 525 MG, PO, 300 MG, PO, 375 MG,
     Route: 048
     Dates: start: 20060720, end: 20060802
  6. CAP BEXAROTENE [Suspect]
     Indication: MYCOSIS FUNGOIDES
     Dosage: 525 MG, PO, 300 MG, PO, 375 MG,
     Route: 048
     Dates: start: 20060803, end: 20060807
  7. FENOFIBRATE [Suspect]
     Indication: PROPHYLAXIS
     Dosage: 250 MG, 400 MG,
     Dates: start: 20060406, end: 20060705
  8. FENOFIBRATE [Suspect]
     Indication: PROPHYLAXIS
     Dosage: 250 MG, 400 MG,
     Dates: start: 20060706
  9. ENALAPRIL MALEATE [Concomitant]
  10. HYDROCHLOROTHIAZIDE [Concomitant]
  11. METOPROLOL TARTRATE [Concomitant]

REACTIONS (13)
  - ANAEMIA [None]
  - BLOOD TRIGLYCERIDES INCREASED [None]
  - EMBOLISM [None]
  - FATIGUE [None]
  - GRANULOMA [None]
  - LYMPHOMA [None]
  - PYREXIA [None]
  - RED BLOOD CELL COUNT DECREASED [None]
  - SKIN NECROSIS [None]
  - STAPHYLOCOCCAL INFECTION [None]
  - SUPERINFECTION BACTERIAL [None]
  - TUMOUR NECROSIS [None]
  - VASCULAR OCCLUSION [None]
